FAERS Safety Report 5009855-3 (Version None)
Quarter: 2006Q2

REPORT INFORMATION
  Report Type: 
  Country: None (occurrence: None)
  Receive Date: 20060522
  Receipt Date: 20060511
  Transmission Date: 20061013
  Serious: Yes (Other)
  Sender: FDA-Public Use
  Company Number: 13970

PATIENT
  Age: 40 Year
  Sex: Female

DRUGS (1)
  1. MITOXANTRONE [Suspect]
     Indication: MULTIPLE SCLEROSIS
     Dosage: 12 MG/M2 MONTHLY
     Dates: start: 20000801

REACTIONS (5)
  - ACUTE PROMYELOCYTIC LEUKAEMIA [None]
  - ASTHENIA [None]
  - HAEMORRHAGE [None]
  - TREATMENT NONCOMPLIANCE [None]
  - VOMITING [None]
